FAERS Safety Report 17269426 (Version 1)
Quarter: 2020Q1

REPORT INFORMATION
  Report Type: Spontaneous
  Country: US (occurrence: US)
  Receive Date: 20200114
  Receipt Date: 20200114
  Transmission Date: 20200409
  Serious: Yes (Other)
  Sender: FDA-Public Use
  Company Number: NVSC2020US006404

PATIENT
  Age: 58 Year
  Sex: Female

DRUGS (3)
  1. AZITHROMYCIN ANHYDROUS. [Suspect]
     Active Substance: AZITHROMYCIN ANHYDROUS
     Indication: PNEUMONIA
     Dosage: UNK
     Route: 065
  2. CEFTRIAXONE. [Suspect]
     Active Substance: CEFTRIAXONE
     Indication: PRODUCT USED FOR UNKNOWN INDICATION
     Dosage: UNK
     Route: 065
  3. FLAGYL [Suspect]
     Active Substance: METRONIDAZOLE\METRONIDAZOLE HYDROCHLORIDE
     Indication: PRODUCT USED FOR UNKNOWN INDICATION
     Dosage: UNK
     Route: 065

REACTIONS (12)
  - Respiratory failure [Unknown]
  - Foaming at mouth [Unknown]
  - Myasthenia gravis crisis [Unknown]
  - Cough [Unknown]
  - Feeling hot [Unknown]
  - Tachycardia [Unknown]
  - Hyperhidrosis [Unknown]
  - Paralysis [Unknown]
  - Hyporesponsive to stimuli [Unknown]
  - Dysphagia [Unknown]
  - Dysuria [Unknown]
  - Dyspnoea [Unknown]
